FAERS Safety Report 10969681 (Version 1)
Quarter: 2015Q1

REPORT INFORMATION
  Report Type: Spontaneous
  Country: None (occurrence: None)
  Receive Date: 20150226
  Receipt Date: 20150226
  Transmission Date: 20150721
  Serious: No
  Sender: FDA-Public Use
  Company Number: TPA2009A03617

PATIENT
  Age: 63 Year
  Sex: Female
  Weight: 92.08 kg

DRUGS (10)
  1. DIOVAN [Concomitant]
     Active Substance: VALSARTAN
  2. CYMBALTA [Concomitant]
     Active Substance: DULOXETINE HYDROCHLORIDE
  3. NORVASC (AMLODIPINE) [Concomitant]
  4. ADVAIR DISKUS [Concomitant]
     Active Substance: FLUTICASONE PROPIONATE\SALMETEROL XINAFOATE
  5. ASPIRIN (ACETYLSALICYLIC ACID) [Concomitant]
     Active Substance: ASPIRIN
  6. ULORIC [Suspect]
     Active Substance: FEBUXOSTAT
     Indication: BLOOD URIC ACID INCREASED
     Route: 048
     Dates: start: 200910, end: 200910
  7. ALBUTEROL (SALBUTAMOL) [Concomitant]
     Active Substance: ALBUTEROL
  8. HCTZ (HYDROCHLOROTHIAZIDE) [Suspect]
     Active Substance: HYDROCHLOROTHIAZIDE
     Indication: HYPERTENSION
     Dosage: UNKNOWN
     Dates: start: 2003, end: 200910
  9. TEKTURNA (ALL OTHER THERAPEUTIC PRODUCTS) [Concomitant]
  10. CLARINEX [Concomitant]
     Active Substance: DESLORATADINE

REACTIONS (1)
  - Dysuria [None]

NARRATIVE: CASE EVENT DATE: 200910
